FAERS Safety Report 24753644 (Version 2)
Quarter: 2025Q1

REPORT INFORMATION
  Report Type: Spontaneous
  Country: CN (occurrence: CN)
  Receive Date: 20241219
  Receipt Date: 20250114
  Transmission Date: 20250409
  Serious: Yes (Hospitalization, Other)
  Sender: BAYER HEALTHCARE PHARMACEUTICALS INC.
  Company Number: CN-BAYER-2023A135523

PATIENT
  Age: 37 Year
  Sex: Female

DRUGS (3)
  1. YAZ [Suspect]
     Active Substance: DROSPIRENONE\ETHINYL ESTRADIOL
     Indication: Contraception
     Route: 048
     Dates: start: 202209, end: 202210
  2. YAZ [Suspect]
     Active Substance: DROSPIRENONE\ETHINYL ESTRADIOL
     Indication: Endometrial disorder
  3. YAZ [Suspect]
     Active Substance: DROSPIRENONE\ETHINYL ESTRADIOL
     Indication: Prophylaxis

REACTIONS (5)
  - Cerebral haemorrhage [Recovering/Resolving]
  - Headache [Recovering/Resolving]
  - Altered state of consciousness [Recovering/Resolving]
  - Cerebral thrombosis [Recovering/Resolving]
  - Senile dementia [None]

NARRATIVE: CASE EVENT DATE: 20221001
